FAERS Safety Report 24190539 (Version 2)
Quarter: 2024Q3

REPORT INFORMATION
  Report Type: Report from Study
  Country: CA (occurrence: None)
  Receive Date: 20240808
  Receipt Date: 20240819
  Transmission Date: 20241017
  Serious: Yes (Other)
  Sender: ASTRAZENECA
  Company Number: 2024A172914

PATIENT
  Age: 640 Month
  Sex: Female

DRUGS (1)
  1. SAPHNELO [Suspect]
     Active Substance: ANIFROLUMAB-FNIA
     Indication: Systemic lupus erythematosus
     Route: 042
     Dates: start: 20230922

REACTIONS (10)
  - Aphonia [Unknown]
  - Viral infection [Unknown]
  - Sneezing [Unknown]
  - Rhinorrhoea [Unknown]
  - Chills [Unknown]
  - Dry throat [Unknown]
  - Asthenia [Unknown]
  - Stress [Unknown]
  - Hypersomnia [Unknown]
  - Nasopharyngitis [Unknown]

NARRATIVE: CASE EVENT DATE: 20240101
